FAERS Safety Report 16990436 (Version 1)
Quarter: 2019Q4

REPORT INFORMATION
  Report Type: Spontaneous
  Country: US (occurrence: US)
  Receive Date: 20191103
  Receipt Date: 20191103
  Transmission Date: 20200122
  Serious: No
  Sender: FDA-Public Use
  Company Number: None

PATIENT
  Age: 76 Year
  Sex: Male
  Weight: 94.5 kg

DRUGS (17)
  1. METFORMIN 1G 2/D [Concomitant]
  2. VIT K 100MCG [Concomitant]
  3. ZEAXANTHIN 5MG [Concomitant]
  4. MAGNESIUM 400MG [Concomitant]
     Active Substance: MAGNESIUM
  5. PROPANOLOL 40MG/D [Concomitant]
  6. LISINOPRIL, 20MG/D [Concomitant]
  7. ATORVASTATIN 40MG/D [Concomitant]
  8. TOUJEO [Suspect]
     Active Substance: INSULIN GLARGINE
     Indication: TYPE 2 DIABETES MELLITUS
     Dosage: ?          QUANTITY:30 INJECTION(S);OTHER ROUTE:INJECTED INTO SKIN?
     Dates: start: 20191021
  9. 1 SENIOR MULTI-VITAMIN [Concomitant]
  10. FERROUS SULFATE 65MG 1 PER 2D [Concomitant]
  11. LUTEIN 25MG [Concomitant]
  12. ZINC GLUCONATE 50 MG [Concomitant]
  13. LISPRO [Concomitant]
     Active Substance: INSULIN LISPRO
  14. DONEPEZIL HCL 5MG/D [Concomitant]
  15. 400U VITAMIN E [Concomitant]
  16. VIT D3 3000U [Concomitant]
  17. VIT B-100 COMPLEX [Concomitant]

REACTIONS (4)
  - Blood glucose increased [None]
  - Insulin resistance [None]
  - Drug ineffective [None]
  - Product substitution issue [None]

NARRATIVE: CASE EVENT DATE: 20191023
